FAERS Safety Report 11254004 (Version 1)
Quarter: 2015Q3

REPORT INFORMATION
  Report Type: Spontaneous
  Country: US (occurrence: None)
  Receive Date: 20150708
  Receipt Date: 20150708
  Transmission Date: 20151125
  Serious: Yes (Other)
  Sender: FDA-Public Use
  Company Number: None

PATIENT
  Age: 46 Year
  Sex: Female

DRUGS (4)
  1. AMPYRA [Suspect]
     Active Substance: DALFAMPRIDINE
     Indication: MULTIPLE SCLEROSIS
     Route: 048
     Dates: start: 201505
  2. METRONIDAZOLE. [Concomitant]
     Active Substance: METRONIDAZOLE
  3. TECFIDERA [Concomitant]
     Active Substance: DIMETHYL FUMARATE
  4. KETOCONAZOLE 2% [Concomitant]
     Active Substance: KETOCONAZOLE

REACTIONS (3)
  - Breast mass [None]
  - Smear cervix abnormal [None]
  - Cervical dysplasia [None]

NARRATIVE: CASE EVENT DATE: 20150609
